FAERS Safety Report 11379383 (Version 1)
Quarter: 2015Q3

REPORT INFORMATION
  Report Type: Spontaneous
  Country: US (occurrence: None)
  Receive Date: 20150813
  Receipt Date: 20150813
  Transmission Date: 20151125
  Serious: Yes (Hospitalization, Disabling, Other)
  Sender: FDA-Public Use
  Company Number: None

PATIENT
  Age: 53 Year
  Sex: Female

DRUGS (22)
  1. ALLOPURINOL. [Concomitant]
     Active Substance: ALLOPURINOL
  2. NAPROXEN SODIUM. [Concomitant]
     Active Substance: NAPROXEN SODIUM
  3. LOSARTAN - HCTZ 50-12.5 MG [Suspect]
     Active Substance: HYDROCHLOROTHIAZIDE\LOSARTAN
     Indication: DIURETIC THERAPY
     Dosage: 50-12.5 MG
     Route: 048
     Dates: start: 20150302, end: 20150519
  4. ZOCOR [Concomitant]
     Active Substance: SIMVASTATIN
  5. TOPAMAX [Concomitant]
     Active Substance: TOPIRAMATE
  6. OMEPRAZOLE. [Concomitant]
     Active Substance: OMEPRAZOLE
  7. STOOL SOFTENER [Concomitant]
     Active Substance: DOCUSATE CALCIUM
  8. VITAMIN C [Concomitant]
     Active Substance: ASCORBIC ACID
  9. VITAMIN D3 [Concomitant]
     Active Substance: CHOLECALCIFEROL
  10. VITAMIN B-50 BALANCED COMPLEX [Concomitant]
  11. BUSPAR [Concomitant]
     Active Substance: BUSPIRONE HYDROCHLORIDE
  12. LEVOTHYROXINE. [Concomitant]
     Active Substance: LEVOTHYROXINE
  13. CLONAZEPAM. [Concomitant]
     Active Substance: CLONAZEPAM
  14. MULTIVITAMIN PLUS IRON [Concomitant]
  15. POTASSIUM CL ER [Concomitant]
  16. LORATADINE. [Concomitant]
     Active Substance: LORATADINE
  17. REMERON [Concomitant]
     Active Substance: MIRTAZAPINE
  18. LASIX [Concomitant]
     Active Substance: FUROSEMIDE
  19. FLEXERALL [Concomitant]
  20. HYDROCODONE [Concomitant]
     Active Substance: HYDROCODONE
  21. LOSARTAN - HCTZ 50-12.5 MG [Suspect]
     Active Substance: HYDROCHLOROTHIAZIDE\LOSARTAN
     Indication: HYPERTENSION
     Dosage: 50-12.5 MG
     Route: 048
     Dates: start: 20150302, end: 20150519
  22. WELLBUTRIN (BUPROPION) [Concomitant]

REACTIONS (1)
  - Tardive dyskinesia [None]

NARRATIVE: CASE EVENT DATE: 20150312
